FAERS Safety Report 20011982 (Version 1)
Quarter: 2021Q4

REPORT INFORMATION
  Report Type: Spontaneous
  Country: US (occurrence: US)
  Receive Date: 20211029
  Receipt Date: 20211029
  Transmission Date: 20220303
  Serious: Yes (Other)
  Sender: FDA-Public Use
  Company Number: US-ROCHE-2941978

PATIENT

DRUGS (1)
  1. KADCYLA [Suspect]
     Active Substance: ADO-TRASTUZUMAB EMTANSINE
     Indication: Breast cancer
     Route: 065

REACTIONS (11)
  - Nausea [Unknown]
  - Fatigue [Unknown]
  - Constipation [Unknown]
  - Pain [Unknown]
  - Aspartate aminotransferase increased [Unknown]
  - Platelet count decreased [Unknown]
  - Diarrhoea [Unknown]
  - Cognitive disorder [Unknown]
  - Cardiac dysfunction [Unknown]
  - Blood alkaline phosphatase increased [Unknown]
  - Ill-defined disorder [Unknown]
